FAERS Safety Report 8829578 (Version 1)
Quarter: 2012Q4

REPORT INFORMATION
  Report Type: Spontaneous
  Country: US (occurrence: None)
  Receive Date: 20121005
  Receipt Date: 20121005
  Transmission Date: 20130627
  Serious: Yes (Disabling)
  Sender: FDA-Public Use
  Company Number: None

PATIENT
  Age: 60 Year
  Sex: Male
  Weight: 74.9 kg

DRUGS (14)
  1. CARBOPLATIN [Suspect]
     Indication: SQUAMOUS CELL CARCINOMA OF THE TONGUE
     Route: 042
     Dates: start: 20120910
  2. CARBOPLATIN [Suspect]
     Indication: SQUAMOUS CELL CARCINOMA OF THE TONGUE
     Dates: start: 20120816
  3. CARBOPLATIN [Suspect]
     Indication: SQUAMOUS CELL CARCINOMA OF THE TONGUE
     Dates: start: 20120824
  4. PREVACID [Concomitant]
  5. IBUPROFEN [Concomitant]
  6. B12 [Concomitant]
  7. COLACE [Concomitant]
  8. MVI [Concomitant]
  9. FISH OIL [Concomitant]
  10. MIRALAX [Concomitant]
  11. COMPAZINE [Concomitant]
  12. FENTANYL PATCH [Concomitant]
  13. OXYCODONE [Concomitant]
  14. ZOFRAN [Concomitant]

REACTIONS (4)
  - Nausea [None]
  - Toxicity to various agents [None]
  - Drug tolerance decreased [None]
  - Tinnitus [None]
